FAERS Safety Report 5913837-4 (Version None)
Quarter: 2008Q4

REPORT INFORMATION
  Report Type: 
  Country: None (occurrence: None)
  Receive Date: 20081009
  Receipt Date: 20081006
  Transmission Date: 20090506
  Serious: Yes (Disabling)
  Sender: FDA-Public Use
  Company Number: A0748721A

PATIENT
  Age: 39 Year
  Sex: Male

DRUGS (7)
  1. WELLBUTRIN [Suspect]
     Indication: DEPRESSION
     Dosage: 300MG PER DAY
     Route: 048
     Dates: start: 20080615, end: 20080801
  2. WELLBUTRIN [Suspect]
     Dosage: 200MG TWICE PER DAY
     Route: 048
     Dates: start: 20080801
  3. OTHER MEDICATIONS [Concomitant]
  4. LEVOXYL [Concomitant]
  5. FLONASE [Concomitant]
  6. LORAZEPAM [Concomitant]
  7. PRILOSEC [Concomitant]

REACTIONS (2)
  - APHASIA [None]
  - COGNITIVE DISORDER [None]
